FAERS Safety Report 13658993 (Version 4)
Quarter: 2018Q1

REPORT INFORMATION
  Report Type: Report from Study
  Country: GB (occurrence: GB)
  Receive Date: 20170616
  Receipt Date: 20180228
  Transmission Date: 20180508
  Serious: Yes (Hospitalization)
  Sender: FDA-Public Use
  Company Number: GB-BIOGEN-2017BI00417166

PATIENT
  Age: 2 Month
  Sex: Female

DRUGS (2)
  1. NUSINERSEN [Suspect]
     Active Substance: NUSINERSEN
     Dosage: 4.3 ML
     Route: 037
     Dates: start: 20170602
  2. NUSINERSEN [Suspect]
     Active Substance: NUSINERSEN
     Indication: SPINAL MUSCULAR ATROPHY
     Route: 037
     Dates: start: 20170505

REACTIONS (2)
  - Pneumonia aspiration [Not Recovered/Not Resolved]
  - Lower respiratory tract infection [Not Recovered/Not Resolved]

NARRATIVE: CASE EVENT DATE: 20170606
